FAERS Safety Report 14952185 (Version 1)
Quarter: 2018Q2

REPORT INFORMATION
  Report Type: Spontaneous
  Country: US (occurrence: US)
  Receive Date: 20180509
  Receipt Date: 20180509
  Transmission Date: 20180711
  Serious: Yes (Other)
  Sender: FDA-Public Use
  Company Number: None

PATIENT
  Age: 81 Year
  Sex: Female
  Weight: 78.3 kg

DRUGS (11)
  1. ALPRAZOLAM. [Concomitant]
     Active Substance: ALPRAZOLAM
  2. FOLIC ACID. [Concomitant]
     Active Substance: FOLIC ACID
  3. LEVOTHYROXINE. [Concomitant]
     Active Substance: LEVOTHYROXINE
  4. LETROZOLE. [Concomitant]
     Active Substance: LETROZOLE
  5. KLOR-CON [Concomitant]
     Active Substance: POTASSIUM CHLORIDE
  6. ALIGN [Concomitant]
     Active Substance: BIFIDOBACTERIUM LONGUM SUBSP. INFANTIS
  7. HCTZ [Concomitant]
     Active Substance: HYDROCHLOROTHIAZIDE
  8. IBRANCE [Suspect]
     Active Substance: PALBOCICLIB
     Indication: BREAST CANCER
     Route: 048
     Dates: start: 20160111
  9. LOSARTAN. [Concomitant]
     Active Substance: LOSARTAN
  10. VANCOMYCIN [Concomitant]
     Active Substance: VANCOMYCIN
  11. OMEPRAZOLE. [Concomitant]
     Active Substance: OMEPRAZOLE

REACTIONS (5)
  - Diarrhoea [None]
  - Bacterial infection [None]
  - Feeling cold [None]
  - Vomiting [None]
  - Nausea [None]
